FAERS Safety Report 16068058 (Version 1)
Quarter: 2019Q1

REPORT INFORMATION
  Report Type: Spontaneous
  Country: FR (occurrence: FR)
  Receive Date: 20190313
  Receipt Date: 20190313
  Transmission Date: 20190418
  Serious: Yes (Hospitalization)
  Sender: FDA-Public Use
  Company Number: FR-MYLANLABS-2019M1023157

PATIENT
  Age: 96 Year
  Sex: Female
  Weight: 81 kg

DRUGS (3)
  1. AXEPIM [Suspect]
     Active Substance: CEFEPIME HYDROCHLORIDE
     Indication: SKIN INFECTION
     Dosage: 1 GRAM, DAILY
     Route: 042
     Dates: start: 20171117, end: 20171205
  2. RIMACTAN                           /00146901/ [Suspect]
     Active Substance: RIFAMPIN
     Indication: SKIN INFECTION
     Dosage: 900 MG, QD
     Route: 048
     Dates: start: 20171121, end: 20171206
  3. LEVOFLOXACIN. [Suspect]
     Active Substance: LEVOFLOXACIN
     Indication: SKIN INFECTION
     Dosage: 750 MILLIGRAM, DAILY
     Route: 048
     Dates: start: 20171121, end: 20171206

REACTIONS (1)
  - Acute generalised exanthematous pustulosis [Recovered/Resolved]

NARRATIVE: CASE EVENT DATE: 20171203
